FAERS Safety Report 7622751-8 (Version None)
Quarter: 2011Q3

REPORT INFORMATION
  Report Type: 
  Country: None (occurrence: None)
  Receive Date: 20110719
  Receipt Date: 20110719
  Transmission Date: 20111222
  Serious: Yes (Other)
  Sender: FDA-Public Use
  Company Number: None

PATIENT
  Sex: Female
  Weight: 56.6996 kg

DRUGS (2)
  1. METHOTREXATE [Suspect]
     Indication: RHEUMATOID ARTHRITIS
     Dosage: 7.5MG 1/WK PO
     Route: 048
     Dates: start: 20110408
  2. METHOTREXATE [Suspect]
     Indication: RHEUMATOID ARTHRITIS
     Dosage: 7.5MG 1/WK PO
     Route: 048
     Dates: start: 20110415

REACTIONS (3)
  - PAIN [None]
  - INSOMNIA [None]
  - BONE PAIN [None]
